FAERS Safety Report 6978623-5 (Version None)
Quarter: 2010Q3

REPORT INFORMATION
  Report Type: 
  Country: None (occurrence: None)
  Receive Date: 20100913
  Receipt Date: 20100901
  Transmission Date: 20110219
  Serious: Yes (Hospitalization)
  Sender: FDA-Public Use
  Company Number: A0777230A

PATIENT
  Age: 73 Year
  Sex: Female
  Weight: 101.8 kg

DRUGS (10)
  1. AVANDIA [Suspect]
     Route: 048
  2. AVANDAMET [Suspect]
  3. GLUCOPHAGE [Concomitant]
  4. SYNTHROID [Concomitant]
  5. IMDUR [Concomitant]
  6. GLYBURIDE [Concomitant]
  7. CRESTOR [Concomitant]
  8. LOTREL [Concomitant]
  9. LANTUS [Concomitant]
  10. LASIX [Concomitant]

REACTIONS (1)
  - MYOCARDIAL INFARCTION [None]
